FAERS Safety Report 5205666-4 (Version None)
Quarter: 2007Q1

REPORT INFORMATION
  Report Type: 
  Country: None (occurrence: None)
  Receive Date: 20070105
  Receipt Date: 20070105
  Transmission Date: 20070707
  Serious: Yes (Hospitalization)
  Sender: FDA-Public Use
  Company Number: None

PATIENT
  Sex: Male

DRUGS (2)
  1. DIPHENHYDRAMINE HCL [Suspect]
     Indication: HYPERSENSITIVITY
     Dosage: 25 MG PO BID
     Route: 048
     Dates: start: 20060804, end: 20060806
  2. DIPHENHYDRAMINE HCL [Suspect]
     Indication: NASOPHARYNGITIS
     Dosage: 25 MG PO BID
     Route: 048
     Dates: start: 20060804, end: 20060806

REACTIONS (3)
  - BLOOD CREATINE PHOSPHOKINASE INCREASED [None]
  - DRUG INEFFECTIVE [None]
  - URINE OUTPUT DECREASED [None]
